FAERS Safety Report 4810117-5 (Version None)
Quarter: 2005Q4

REPORT INFORMATION
  Report Type: 
  Country: None (occurrence: None)
  Receive Date: 20051024
  Receipt Date: 20051014
  Transmission Date: 20060501
  Serious: Yes (Other)
  Sender: FDA-Public Use
  Company Number: 2005143909

PATIENT
  Age: 86 Year
  Sex: Female
  Weight: 61 kg

DRUGS (5)
  1. GABAPENTIN [Suspect]
     Indication: NEURALGIA
     Dosage: 600 MG (300 MG, 2 IN 1 D), ORAL
     Route: 048
     Dates: start: 20040801, end: 20050909
  2. IBUPROFEN [Concomitant]
  3. PARACETAMOL (PARACETAMOL) [Concomitant]
  4. ADCAL(CARBAZOCHROME) [Concomitant]
  5. OMEPRAZOLE [Concomitant]

REACTIONS (2)
  - INFECTION [None]
  - NEUTROPENIA [None]
